FAERS Safety Report 21652124 (Version 2)
Quarter: 2022Q4

REPORT INFORMATION
  Report Type: Spontaneous
  Country: CZ (occurrence: CZ)
  Receive Date: 20221128
  Receipt Date: 20221205
  Transmission Date: 20230113
  Serious: Yes (Death, Other)
  Sender: FDA-Public Use
  Company Number: CZ-PFIZER INC-202201330488

PATIENT
  Age: 51 Year
  Sex: Female

DRUGS (2)
  1. LORLATINIB [Suspect]
     Active Substance: LORLATINIB
     Indication: Lung adenocarcinoma stage IV
     Dosage: UNK
     Dates: start: 201810
  2. LORLATINIB [Suspect]
     Active Substance: LORLATINIB
     Dosage: 75 MG, DAILY (REDUCED DOSE)

REACTIONS (7)
  - Death [Fatal]
  - Subcapsular splenic haematoma [Unknown]
  - Swelling [Unknown]
  - Hyperlipidaemia [Unknown]
  - Infection [Unknown]
  - C-reactive protein increased [Unknown]
  - Neoplasm progression [Unknown]

NARRATIVE: CASE EVENT DATE: 20190101
